FAERS Safety Report 4503038-9 (Version None)
Quarter: 2004Q4

REPORT INFORMATION
  Report Type: 
  Country: None (occurrence: None)
  Receive Date: 20041112
  Receipt Date: 20041105
  Transmission Date: 20050328
  Serious: Yes (Death, Congenital Anomaly)
  Sender: FDA-Public Use
  Company Number: 2004SE06225

PATIENT
  Sex: Female
  Weight: 4.3 kg

DRUGS (3)
  1. ATACAND [Suspect]
     Dates: end: 20031101
  2. LONGOVITAL [Concomitant]
  3. VISKEN [Concomitant]

REACTIONS (12)
  - AORTA HYPOPLASIA [None]
  - ATRIOVENTRICULAR CANAL [None]
  - BLOOD LACTIC ACID INCREASED [None]
  - BRADYCARDIA NEONATAL [None]
  - COARCTATION OF THE AORTA [None]
  - CONGENITAL VENTRICULAR SEPTAL DEFECT [None]
  - DRUG EXPOSURE DURING PREGNANCY [None]
  - DYSPNOEA [None]
  - GESTATIONAL DIABETES [None]
  - HEART VALVE INSUFFICIENCY [None]
  - PREGNANCY [None]
  - SHUNT OCCLUSION [None]
